FAERS Safety Report 20057154 (Version 1)
Quarter: 2021Q4

REPORT INFORMATION
  Report Type: Spontaneous
  Country: GB (occurrence: GB)
  Receive Date: 20211111
  Receipt Date: 20211111
  Transmission Date: 20220303
  Serious: Yes (Disabling, Other)
  Sender: FDA-Public Use
  Company Number: None

PATIENT
  Age: 24 Year
  Sex: Female
  Weight: 50 kg

DRUGS (4)
  1. VENLAFAXINE HYDROCHLORIDE [Suspect]
     Active Substance: VENLAFAXINE HYDROCHLORIDE
     Indication: Depression
     Route: 048
     Dates: start: 20161010, end: 20201021
  2. MIRTAZAPINE [Concomitant]
     Active Substance: MIRTAZAPINE
     Indication: Ill-defined disorder
  3. ACETAMINOPHEN [Concomitant]
     Active Substance: ACETAMINOPHEN
     Indication: Ill-defined disorder
  4. SERTRALINE HYDROCHLORIDE [Concomitant]
     Active Substance: SERTRALINE HYDROCHLORIDE
     Indication: Ill-defined disorder

REACTIONS (6)
  - Vomiting [Recovered/Resolved with Sequelae]
  - Dyspepsia [Recovered/Resolved with Sequelae]
  - Nausea [Recovered/Resolved with Sequelae]
  - Lymphadenopathy [Recovered/Resolved with Sequelae]
  - Dyspepsia [Recovered/Resolved with Sequelae]
  - Tooth disorder [Recovered/Resolved with Sequelae]

NARRATIVE: CASE EVENT DATE: 20170415
